FAERS Safety Report 16757612 (Version 2)
Quarter: 2019Q3

REPORT INFORMATION
  Report Type: Spontaneous
  Country: US (occurrence: US)
  Receive Date: 20190830
  Receipt Date: 20190906
  Transmission Date: 20191005
  Serious: No
  Sender: FDA-Public Use
  Company Number: US-BAXTER-2019BAX017140

PATIENT
  Age: 0 Day
  Sex: Male

DRUGS (2)
  1. 10% DEXTROSE INJECTION, USP [Suspect]
     Active Substance: DEXTROSE
     Dosage: DOSE REDUCED
     Route: 042
     Dates: start: 20190820, end: 201908
  2. 10% DEXTROSE INJECTION, USP [Suspect]
     Active Substance: DEXTROSE
     Indication: BLOOD GLUCOSE DECREASED
     Route: 042
     Dates: start: 20190820, end: 20190820

REACTIONS (1)
  - Blood glucose increased [Recovered/Resolved]

NARRATIVE: CASE EVENT DATE: 20190820
